FAERS Safety Report 17478538 (Version 2)
Quarter: 2020Q2

REPORT INFORMATION
  Report Type: Spontaneous
  Country: US (occurrence: US)
  Receive Date: 20200228
  Receipt Date: 20200506
  Transmission Date: 20200713
  Serious: Yes (Hospitalization, Disabling, Other)
  Sender: FDA-Public Use
  Company Number: US-MELINTA THERAPEUTICS, INC-US-MLNT-20-00057

PATIENT
  Age: 73 Year
  Sex: Male
  Weight: 80.8 kg

DRUGS (4)
  1. VANCOMYCIN [Concomitant]
     Active Substance: VANCOMYCIN
     Indication: CELLULITIS
     Dosage: NOT PROVIDED.
     Route: 042
  2. ZYVOX [Concomitant]
     Active Substance: LINEZOLID
     Indication: CELLULITIS
     Route: 042
  3. ORBACTIV [Suspect]
     Active Substance: ORITAVANCIN
     Indication: CELLULITIS
     Dosage: NOT PROVIDED.
     Route: 041
     Dates: start: 20200119, end: 20200119
  4. CLEOCIN [Concomitant]
     Active Substance: CLINDAMYCIN PHOSPHATE
     Indication: CELLULITIS
     Dosage: NOT PROVIDED.

REACTIONS (2)
  - Drug ineffective [Not Recovered/Not Resolved]
  - Skin necrosis [Recovering/Resolving]

NARRATIVE: CASE EVENT DATE: 20200119
